FAERS Safety Report 21147581 (Version 2)
Quarter: 2023Q1

REPORT INFORMATION
  Report Type: Other
  Country: AU (occurrence: None)
  Receive Date: 20220729
  Receipt Date: 20230127
  Transmission Date: 20230417
  Serious: No
  Sender: FDA-Public Use
  Company Number: AU-ROCHE-2529863

PATIENT
  Age: 45 Year
  Sex: Female

DRUGS (1)
  1. OCREVUS [Suspect]
     Active Substance: OCRELIZUMAB
     Indication: Relapsing-remitting multiple sclerosis
     Dosage: ON 20/FEB/2019 AND 29/JUL/2019, SHE RECEIVED OCRELIZUMAB INFUSION.
     Route: 041
     Dates: start: 20190206

REACTIONS (4)
  - Lymphocyte count decreased [Unknown]
  - COVID-19 [Recovered/Resolved with Sequelae]
  - Fatigue [Not Recovered/Not Resolved]
  - Dizziness [Not Recovered/Not Resolved]

NARRATIVE: CASE EVENT DATE: 20200101
